FAERS Safety Report 10268494 (Version 1)
Quarter: 2014Q2

REPORT INFORMATION
  Report Type: Spontaneous
  Country: US (occurrence: US)
  Receive Date: 20140630
  Receipt Date: 20140630
  Transmission Date: 20141212
  Serious: Yes (Hospitalization, Other)
  Sender: FDA-Public Use
  Company Number: US-B.I. PHARMACEUTICALS,INC./RIDGEFIELD-2014-BI-29176BP

PATIENT
  Sex: Female
  Weight: 82 kg

DRUGS (16)
  1. PRADAXA [Suspect]
     Indication: PRODUCT USED FOR UNKNOWN INDICATION
     Dosage: 300 MG
     Route: 048
     Dates: start: 2013, end: 2013
  2. ASPIRIN [Concomitant]
     Indication: ANTICOAGULANT THERAPY
     Dosage: 325 MG
     Route: 048
     Dates: start: 201311
  3. DILTIAZEM ER [Concomitant]
     Indication: HYPERTENSION
     Dosage: 360 MG
     Route: 048
     Dates: start: 2009
  4. POTASSIUM [Concomitant]
     Indication: SUPPLEMENTATION THERAPY
     Dosage: 30 MEQ
     Route: 048
     Dates: start: 2009
  5. CLONAZEPAM [Concomitant]
     Indication: ANXIETY
     Dosage: 1.5 MG
     Route: 048
     Dates: start: 201306
  6. GABAPENTIN [Concomitant]
     Indication: RESTLESS LEGS SYNDROME
     Dosage: 600 MG
     Route: 048
  7. GABAPENTIN [Concomitant]
     Indication: NEUROPATHY PERIPHERAL
  8. CLARITHROMYCIN [Concomitant]
     Indication: TUBERCULOSIS
     Dosage: 1000 MG
     Route: 048
     Dates: start: 2013
  9. METOPROLOL [Concomitant]
     Indication: HYPERTENSION
     Dosage: 50 MG
     Route: 048
     Dates: start: 201404
  10. LYRICA [Concomitant]
     Indication: FIBROMYALGIA
     Dosage: 300 MG
     Route: 048
     Dates: start: 2008
  11. ZOLPIDEM [Concomitant]
     Indication: INSOMNIA
     Route: 048
     Dates: start: 2011
  12. RIFAMPIN [Concomitant]
     Indication: TUBERCULOSIS
     Dosage: 600 MG
     Route: 048
     Dates: start: 2013
  13. LISINOPRIL [Concomitant]
     Indication: HYPERTENSION
     Dosage: 40 MG
     Route: 048
     Dates: start: 2009
  14. SPIRIVA [Concomitant]
     Dosage: 18 MCG
     Route: 055
     Dates: start: 2014
  15. HUMOLOG [Concomitant]
     Indication: DIABETES MELLITUS
     Dosage: FORMULATION: SUBCUTANEOUS; STRENGTH: 6 UNITS
     Route: 058
     Dates: start: 1984
  16. LEVEMIR [Concomitant]
     Indication: DIABETES MELLITUS
     Dosage: FORMULATION: SUBCUTANEOUS; DOSE PER APPLICATION: 16 UNITS; DAILY DOSE: 16 UNITS
     Route: 058
     Dates: start: 1984

REACTIONS (5)
  - Dyspnoea [Unknown]
  - Pulmonary arterial hypertension [Not Recovered/Not Resolved]
  - Haemoglobin decreased [Unknown]
  - Cardiac valve disease [Not Recovered/Not Resolved]
  - Pleural effusion [Unknown]
